FAERS Safety Report 21572860 (Version 12)
Quarter: 2024Q1

REPORT INFORMATION
  Report Type: Spontaneous
  Country: US (occurrence: US)
  Receive Date: 20221109
  Receipt Date: 20240301
  Transmission Date: 20240409
  Serious: Yes (Hospitalization, Other)
  Sender: FDA-Public Use
  Company Number: US-PFIZER INC-PV202200099415

PATIENT
  Age: 61 Year
  Sex: Female
  Weight: 62.132 kg

DRUGS (8)
  1. BRAFTOVI [Suspect]
     Active Substance: ENCORAFENIB
     Indication: Colorectal cancer
     Dosage: 300 MG, 1X/DAY
  2. BRAFTOVI [Suspect]
     Active Substance: ENCORAFENIB
     Dosage: 150 MG, 1X/DAY
  3. BRAFTOVI [Suspect]
     Active Substance: ENCORAFENIB
     Dosage: 225 MG, 1X/DAY
     Dates: start: 202008
  4. BRAFTOVI [Suspect]
     Active Substance: ENCORAFENIB
     Dosage: 225 MG (THREE CAPSULES), ONCE A DAY SAME TIME EVERY DAY
     Route: 048
     Dates: start: 2022
  5. BRAFTOVI [Suspect]
     Active Substance: ENCORAFENIB
     Dosage: 225 MG (3 CAPS) DAILY
     Route: 048
  6. PROGESTERONE [Suspect]
     Active Substance: PROGESTERONE
     Dosage: UNK
  7. ALLER ZYR [Concomitant]
     Dosage: 10 MG, ONE HOUR BEFORE
  8. CETUXIMAB [Concomitant]
     Active Substance: CETUXIMAB
     Dosage: 404 MG, WEEKLY (INFUSED ONCE A WEEK)

REACTIONS (13)
  - Psychiatric symptom [Unknown]
  - Second primary malignancy [Unknown]
  - Skin cancer [Unknown]
  - Haemorrhage [Unknown]
  - Acne [Unknown]
  - Ephelides [Unknown]
  - Skin discolouration [Unknown]
  - Blood iron decreased [Unknown]
  - COVID-19 [Unknown]
  - Swelling face [Unknown]
  - Erythema [Not Recovered/Not Resolved]
  - Dyspnoea [Unknown]
  - Illness [Unknown]

NARRATIVE: CASE EVENT DATE: 20220801
